FAERS Safety Report 7561254-6 (Version None)
Quarter: 2011Q2

REPORT INFORMATION
  Report Type: 
  Country: None (occurrence: None)
  Receive Date: 20110621
  Receipt Date: 20110615
  Transmission Date: 20111010
  Serious: Yes (Other)
  Sender: FDA-Public Use
  Company Number: GB-B.I. PHARMACEUTICALS,INC./RIDGEFIELD-2011-UK-00577UK

PATIENT
  Sex: Female

DRUGS (8)
  1. FUROSEMIDE [Concomitant]
  2. ACETAMINOPHEN [Concomitant]
  3. FERROUS FUMARATE [Concomitant]
  4. DICLOFENAC SODIUM [Concomitant]
  5. CALCI CHEW [Concomitant]
  6. PRADAXA [Suspect]
     Indication: EMBOLISM VENOUS
     Dosage: 150 MG
  7. OMEPRAZOLE [Concomitant]
  8. CODEINE SULFATE [Concomitant]

REACTIONS (1)
  - DEEP VEIN THROMBOSIS [None]
